FAERS Safety Report 19331130 (Version 4)
Quarter: 2022Q2

REPORT INFORMATION
  Report Type: Report from Study
  Country: CO (occurrence: CO)
  Receive Date: 20210528
  Receipt Date: 20220531
  Transmission Date: 20220721
  Serious: Yes (Hospitalization)
  Sender: FDA-Public Use
  Company Number: NVSC2021CO117226

PATIENT
  Sex: Female

DRUGS (2)
  1. COSENTYX [Suspect]
     Active Substance: SECUKINUMAB
     Indication: Psoriasis
     Dosage: 300 MG, QMO
     Route: 058
  2. COSENTYX [Suspect]
     Active Substance: SECUKINUMAB
     Dosage: 300 MG, QMO
     Route: 058
     Dates: start: 20210721

REACTIONS (9)
  - COVID-19 [Unknown]
  - Speech disorder [Unknown]
  - Headache [Unknown]
  - Pain [Unknown]
  - Abdominal pain upper [Unknown]
  - Nausea [Unknown]
  - Feeling abnormal [Unknown]
  - Malaise [Recovered/Resolved]
  - Influenza [Unknown]
